FAERS Safety Report 23027767 (Version 1)
Quarter: 2023Q4

REPORT INFORMATION
  Report Type: Spontaneous
  Country: US (occurrence: None)
  Receive Date: 20231003
  Receipt Date: 20231003
  Transmission Date: 20240109
  Serious: Yes (Life-Threatening, Hospitalization, Disabling, Other)
  Sender: FDA-Public Use
  Company Number: None

PATIENT
  Age: 64 Year
  Sex: Female
  Weight: 81 kg

DRUGS (5)
  1. RINVOQ [Suspect]
     Active Substance: UPADACITINIB
     Indication: Neurodermatitis
     Dates: start: 20210524, end: 20230804
  2. IBUPROFEN [Concomitant]
     Active Substance: IBUPROFEN
  3. GABAPENTIN [Concomitant]
     Active Substance: GABAPENTIN
  4. FAMOTIDINE [Concomitant]
     Active Substance: FAMOTIDINE
  5. OMEPRAZOLE [Concomitant]
     Active Substance: OMEPRAZOLE

REACTIONS (3)
  - Myocardial injury [None]
  - Mitral valve prolapse [None]
  - Mitral valve incompetence [None]

NARRATIVE: CASE EVENT DATE: 20230601
